FAERS Safety Report 9915263 (Version 1)
Quarter: 2014Q1

REPORT INFORMATION
  Report Type: Report from Study
  Country: US (occurrence: US)
  Receive Date: 20140221
  Receipt Date: 20140221
  Transmission Date: 20141002
  Serious: Yes (Death)
  Sender: FDA-Public Use
  Company Number: US-ROCHE-1323743

PATIENT
  Sex: Male

DRUGS (6)
  1. AVASTIN [Suspect]
     Indication: COLON CANCER
     Dosage: INFUSED WITH 0.9 % 100 ML INTRAVENOUS NORMAL SALINE.
     Route: 042
     Dates: start: 20111128
  2. AVASTIN [Suspect]
     Dosage: INFUSED WITH 0.9 % 100 ML INTRAVENOUS NORMAL SALINE.
     Route: 042
     Dates: start: 20111213
  3. DEXAMETHASONE [Concomitant]
     Dosage: ALSO RECEIVED ON 13/DEC/2011
     Route: 042
     Dates: start: 20111128
  4. FOLINIC ACID [Concomitant]
     Dosage: FOLFOX
     Route: 065
  5. 5-FU [Concomitant]
     Dosage: FOLFOX
     Route: 065
  6. OXALIPLATIN [Concomitant]
     Dosage: FOLFOX
     Route: 065

REACTIONS (2)
  - Death [Fatal]
  - Off label use [Unknown]
